FAERS Safety Report 19598037 (Version 2)
Quarter: 2021Q3

REPORT INFORMATION
  Report Type: Spontaneous
  Country: US (occurrence: US)
  Receive Date: 20210722
  Receipt Date: 20210728
  Transmission Date: 20211014
  Serious: Yes (Other)
  Sender: FDA-Public Use
  Company Number: US-TEVA-2021-US-1933628

PATIENT
  Age: 69 Year
  Sex: Female

DRUGS (3)
  1. TREPROSTINIL. [Suspect]
     Active Substance: TREPROSTINIL
     Indication: PULMONARY ARTERIAL HYPERTENSION
     Dosage: TREATMENT STARTED 12 MONTHS PRIOR TO LESION ONSET.
     Route: 065
  2. TADALAFIL. [Suspect]
     Active Substance: TADALAFIL
     Indication: PULMONARY ARTERIAL HYPERTENSION
     Dosage: TREATMENT STARTED 12 MONTHS PRIOR TO LESION ONSET.
     Route: 065
  3. MACITENTAN [Suspect]
     Active Substance: MACITENTAN
     Indication: PULMONARY ARTERIAL HYPERTENSION
     Dosage: TREATMENT STARTED 12 MONTHS PRIOR TO LESION ONSET.
     Route: 065

REACTIONS (1)
  - Psoriasis [Recovering/Resolving]
